FAERS Safety Report 17957683 (Version 1)
Quarter: 2020Q2

REPORT INFORMATION
  Report Type: Spontaneous
  Country: LV (occurrence: LV)
  Receive Date: 20200629
  Receipt Date: 20200629
  Transmission Date: 20200714
  Serious: Yes (Other)
  Sender: FDA-Public Use
  Company Number: LV-TEVA-2020-LV-1792114

PATIENT
  Age: 90 Year
  Sex: Female
  Weight: 62 kg

DRUGS (4)
  1. AMLESSA 4 MG/5 MG TABLETES [Suspect]
     Active Substance: AMLODIPINE BESYLATE\PERINDOPRIL ERBUMINE
     Indication: HYPERTENSION
     Route: 048
     Dates: start: 20200420, end: 20200607
  2. METOPROLOL HEXAL 23,75 MG [Concomitant]
     Route: 048
     Dates: start: 20200420
  3. ATORVASTATIN TEVA 20 MG APVALKOTAS TABLETES [Suspect]
     Active Substance: ATORVASTATIN
     Indication: HYPERLIPIDAEMIA
     Route: 048
     Dates: start: 20200420, end: 20200607
  4. ISOMONIT 60 MG ILGSTOSAS DARBIBAS TABLETES [Concomitant]
     Indication: ANGINA PECTORIS
     Dosage: FORM OF ADMIN. TEXT : LONG-TERM TABLETS
     Route: 048
     Dates: start: 20200420

REACTIONS (4)
  - Rash [Recovered/Resolved]
  - Asthenia [Recovered/Resolved]
  - Headache [Recovered/Resolved]
  - Pruritus [Recovered/Resolved]

NARRATIVE: CASE EVENT DATE: 20200420
